FAERS Safety Report 10028317 (Version 1)
Quarter: 2014Q1

REPORT INFORMATION
  Report Type: Other
  Country: JP (occurrence: JP)
  Receive Date: 20140321
  Receipt Date: 20140321
  Transmission Date: 20141002
  Serious: Yes (Death)
  Sender: FDA-Public Use
  Company Number: JP-ACTELION-A-CH2014-96236

PATIENT
  Age: 12 Year
  Sex: Female

DRUGS (6)
  1. TRACLEER [Suspect]
     Indication: PULMONARY VENO-OCCLUSIVE DISEASE
     Route: 048
  2. BERAPROST [Concomitant]
  3. MIZORIBINE [Concomitant]
  4. CYCLOSPORINE [Concomitant]
  5. OXYGEN [Concomitant]
  6. AZATHIOPRINE [Concomitant]

REACTIONS (3)
  - Pulmonary oedema [Fatal]
  - Respiratory distress [Fatal]
  - Oxygen saturation decreased [Fatal]
